FAERS Safety Report 8119571-7 (Version None)
Quarter: 2012Q1

REPORT INFORMATION
  Report Type: 
  Country: None (occurrence: None)
  Receive Date: 20120203
  Receipt Date: 20120119
  Transmission Date: 20120608
  Serious: Yes (Death)
  Sender: FDA-Public Use
  Company Number: JPI-P-007226

PATIENT
  Age: 34 Year
  Sex: Male

DRUGS (15)
  1. XYREM [Suspect]
     Indication: INSOMNIA
     Dosage: 6 GM (3 GM, 2 IN 1 D), ORAL, (UNKNOWN), ORAL, 24 GM (8 GM, 3 IN 1 D), ORAL, 24 GM (8 GM, 3 IN 1 D),
     Route: 048
     Dates: start: 20041202, end: 20060101
  2. XYREM [Suspect]
     Indication: NARCOLEPSY
     Dosage: 6 GM (3 GM, 2 IN 1 D), ORAL, (UNKNOWN), ORAL, 24 GM (8 GM, 3 IN 1 D), ORAL, 24 GM (8 GM, 3 IN 1 D),
     Route: 048
     Dates: start: 20041202, end: 20060101
  3. XYREM [Suspect]
     Indication: INSOMNIA
     Dosage: 6 GM (3 GM, 2 IN 1 D), ORAL, (UNKNOWN), ORAL, 24 GM (8 GM, 3 IN 1 D), ORAL, 24 GM (8 GM, 3 IN 1 D),
     Route: 048
     Dates: start: 20070829, end: 20090408
  4. XYREM [Suspect]
     Indication: NARCOLEPSY
     Dosage: 6 GM (3 GM, 2 IN 1 D), ORAL, (UNKNOWN), ORAL, 24 GM (8 GM, 3 IN 1 D), ORAL, 24 GM (8 GM, 3 IN 1 D),
     Route: 048
     Dates: start: 20070829, end: 20090408
  5. XYREM [Suspect]
     Indication: INSOMNIA
     Dosage: 6 GM (3 GM, 2 IN 1 D), ORAL, (UNKNOWN), ORAL, 24 GM (8 GM, 3 IN 1 D), ORAL, 24 GM (8 GM, 3 IN 1 D),
     Route: 048
     Dates: end: 20070805
  6. XYREM [Suspect]
     Indication: NARCOLEPSY
     Dosage: 6 GM (3 GM, 2 IN 1 D), ORAL, (UNKNOWN), ORAL, 24 GM (8 GM, 3 IN 1 D), ORAL, 24 GM (8 GM, 3 IN 1 D),
     Route: 048
     Dates: end: 20070805
  7. XYREM [Suspect]
     Indication: INSOMNIA
     Dosage: 6 GM (3 GM, 2 IN 1 D), ORAL, (UNKNOWN), ORAL, 24 GM (8 GM, 3 IN 1 D), ORAL, 24 GM (8 GM, 3 IN 1 D),
     Route: 048
     Dates: start: 20070501
  8. XYREM [Suspect]
     Indication: NARCOLEPSY
     Dosage: 6 GM (3 GM, 2 IN 1 D), ORAL, (UNKNOWN), ORAL, 24 GM (8 GM, 3 IN 1 D), ORAL, 24 GM (8 GM, 3 IN 1 D),
     Route: 048
     Dates: start: 20070501
  9. OPIODS [Suspect]
     Indication: PRODUCT USED FOR UNKNOWN INDICATION
     Dosage: UNKNOWN
  10. UNSPECIFIED ANTIDEPRESSANTS [Suspect]
     Indication: PRODUCT USED FOR UNKNOWN INDICATION
     Dosage: UNKNOWN
  11. NARCOTICS AND PSYCHODYSLEPTICS [Suspect]
     Indication: PRODUCT USED FOR UNKNOWN INDICATION
     Dosage: UNKNOWN
  12. UNSPECIFIED PSYCHOTROPICS [Suspect]
     Indication: PRODUCT USED FOR UNKNOWN INDICATION
     Dosage: UNKNOWN
  13. UNSPECIFIED DRUGS, MEDICAMENTS, AND BIOLOGICAL SUBSTANCES [Suspect]
     Indication: PRODUCT USED FOR UNKNOWN INDICATION
     Dosage: UNKNOWN
  14. PHENOTHIAZINE ANTIPSYCHOTICS [Suspect]
     Indication: PRODUCT USED FOR UNKNOWN INDICATION
     Dosage: UNKNOWN
  15. NEUROLEPTICS [Suspect]
     Indication: PRODUCT USED FOR UNKNOWN INDICATION
     Dosage: UNKNOWN

REACTIONS (4)
  - BRONCHOPNEUMONIA [None]
  - ACCIDENTAL POISONING [None]
  - TOXICITY TO VARIOUS AGENTS [None]
  - INFLUENZA LIKE ILLNESS [None]
